FAERS Safety Report 11898601 (Version 2)
Quarter: 2016Q1

REPORT INFORMATION
  Report Type: Report from Study
  Country: US (occurrence: US)
  Receive Date: 20160108
  Receipt Date: 20160209
  Transmission Date: 20160526
  Serious: Yes (Other)
  Sender: FDA-Public Use
  Company Number: US-TEVA-623709USA

PATIENT
  Age: 69 Year
  Sex: Female

DRUGS (19)
  1. CLOZAPINE. [Suspect]
     Active Substance: CLOZAPINE
     Dosage: 100 MILLIGRAM DAILY;
     Route: 048
     Dates: start: 201511, end: 20151228
  2. CLOZAPINE. [Suspect]
     Active Substance: CLOZAPINE
     Dosage: 100 MILLIGRAM DAILY;
     Route: 048
     Dates: start: 20151231
  3. BISACODYL. [Concomitant]
     Active Substance: BISACODYL
  4. MYLANTA [Concomitant]
     Active Substance: ALUMINUM HYDROXIDE\DIMETHICONE\MAGNESIUM HYDROXIDE
  5. LIDOCAINE. [Concomitant]
     Active Substance: LIDOCAINE
  6. CALCITONIN [Concomitant]
     Active Substance: CALCITONIN
  7. RISPERDAL CONSTA [Concomitant]
     Active Substance: RISPERIDONE
  8. DEPAKOTE [Concomitant]
     Active Substance: DIVALPROEX SODIUM
  9. ATIVAN [Concomitant]
     Active Substance: LORAZEPAM
  10. LATANOPROST. [Concomitant]
     Active Substance: LATANOPROST
  11. OXYCODONE AND ACETAMINOPHEN [Concomitant]
     Active Substance: ACETAMINOPHEN\OXYCODONE HYDROCHLORIDE
     Dosage: 5/325MG
  12. TIZANIDINE. [Concomitant]
     Active Substance: TIZANIDINE
  13. CLOZAPINE. [Suspect]
     Active Substance: CLOZAPINE
     Indication: SCHIZOPHRENIA
     Dosage: 200 MILLIGRAM DAILY;
     Route: 048
     Dates: start: 2006, end: 201506
  14. DOCUSATE [Concomitant]
     Active Substance: DOCUSATE
  15. VITAMIN D3 [Concomitant]
     Active Substance: CHOLECALCIFEROL
  16. DILANTIN [Concomitant]
     Active Substance: PHENYTOIN
  17. NEURONTIN [Concomitant]
     Active Substance: GABAPENTIN
  18. MILK OF MAGNESIA [Concomitant]
     Active Substance: MAGNESIUM HYDROXIDE
  19. KCL [Concomitant]
     Active Substance: POTASSIUM CHLORIDE

REACTIONS (1)
  - Granulocytopenia [Recovered/Resolved]

NARRATIVE: CASE EVENT DATE: 20151228
